FAERS Safety Report 17237485 (Version 2)
Quarter: 2020Q1

REPORT INFORMATION
  Report Type: Spontaneous
  Country: BR (occurrence: BR)
  Receive Date: 20200106
  Receipt Date: 20200124
  Transmission Date: 20200409
  Serious: Yes (Hospitalization, Other)
  Sender: FDA-Public Use
  Company Number: BR-JNJFOC-20200103737

PATIENT
  Age: 58 Year
  Sex: Female

DRUGS (9)
  1. DIAMOX                             /00016901/ [Concomitant]
     Active Substance: ACETAZOLAMIDE
     Indication: METABOLIC MYOPATHY
     Dates: start: 2019, end: 20191126
  2. PURAN [Concomitant]
     Active Substance: LEVOTHYROXINE SODIUM
     Indication: HYPOTHYROIDISM
  3. GABAPENTINA [Concomitant]
     Active Substance: GABAPENTIN
     Indication: METABOLIC MYOPATHY
  4. GABAPENTINA [Concomitant]
     Active Substance: GABAPENTIN
     Indication: MYALGIA
     Dates: start: 2019, end: 20191126
  5. DIAMOX                             /00016901/ [Concomitant]
     Active Substance: ACETAZOLAMIDE
     Indication: MYALGIA
  6. CLORIDRATO DE CICLOBENZAPRINA [Concomitant]
     Indication: MYALGIA
     Dates: start: 2019, end: 20191126
  7. NAPRIX D [Concomitant]
     Indication: HYPERTENSION
     Dosage: 5X12.5
  8. RIVAROXABAN [Suspect]
     Active Substance: RIVAROXABAN
     Indication: HYPERCOAGULATION
     Dosage: 20 MG, QD
     Route: 048
     Dates: start: 2014, end: 20191125
  9. CLORIDRATO DE CICLOBENZAPRINA [Concomitant]
     Indication: METABOLIC MYOPATHY

REACTIONS (4)
  - Pulmonary embolism [Recovered/Resolved]
  - Off label use [Unknown]
  - Drug ineffective [Unknown]
  - Product use in unapproved indication [Unknown]

NARRATIVE: CASE EVENT DATE: 20191126
